FAERS Safety Report 9951487 (Version 1)
Quarter: 2014Q1

REPORT INFORMATION
  Report Type: Report from Study
  Country: US (occurrence: US)
  Receive Date: 20140304
  Receipt Date: 20140304
  Transmission Date: 20141002
  Serious: No
  Sender: FDA-Public Use
  Company Number: US-ABBVIE-13P-163-1070830-00

PATIENT
  Age: 34 Year
  Sex: 0

DRUGS (3)
  1. HUMIRA [Suspect]
     Indication: CROHN^S DISEASE
     Dates: start: 20130320, end: 20130320
  2. METRONIDAZOLE [Concomitant]
     Indication: GASTRIC INFECTION
  3. CIPORIC [Concomitant]
     Indication: GASTRIC INFECTION

REACTIONS (2)
  - Dizziness [Not Recovered/Not Resolved]
  - Nausea [Not Recovered/Not Resolved]
